FAERS Safety Report 16410287 (Version 1)
Quarter: 2019Q2

REPORT INFORMATION
  Report Type: Spontaneous
  Country: DK (occurrence: DK)
  Receive Date: 20190610
  Receipt Date: 20190610
  Transmission Date: 20190711
  Serious: Yes (Other)
  Sender: FDA-Public Use
  Company Number: DK-009507513-1906DNK001371

PATIENT
  Age: 46 Year
  Sex: Female

DRUGS (1)
  1. PEMBROLIZUMAB. [Suspect]
     Active Substance: PEMBROLIZUMAB
     Dosage: UNK, 5 SERIES
     Dates: start: 201607

REACTIONS (11)
  - Myxoedema [Unknown]
  - Thyroiditis [Unknown]
  - Hepatic cancer metastatic [Unknown]
  - Hyperthyroidism [Unknown]
  - Diarrhoea [Unknown]
  - Pruritus [Unknown]
  - Metastases to bone [Unknown]
  - Urticaria [Unknown]
  - Dyspnoea [Unknown]
  - Lung neoplasm malignant [Unknown]
  - Fluid retention [Unknown]

NARRATIVE: CASE EVENT DATE: 201607
